FAERS Safety Report 8599665-2 (Version None)
Quarter: 2012Q3

REPORT INFORMATION
  Report Type: 
  Country: None (occurrence: None)
  Receive Date: 20120802
  Receipt Date: 20120719
  Transmission Date: 20120928
  Serious: Yes (Life-Threatening)
  Sender: FDA-Public Use
  Company Number: FK201202067

PATIENT
  Age: 42 Year
  Sex: Male

DRUGS (1)
  1. VANCOMYCIN [Suspect]
     Indication: ANTIBIOTIC PROPHYLAXIS
     Dosage: 400 MG, UNKNOWN , INTRAVENOUS (NOT OTHERWISE SPECIFIED)
     Route: 042

REACTIONS (6)
  - BLOOD PRESSURE DECREASED [None]
  - CARDIAC ARREST [None]
  - VENTRICULAR FIBRILLATION [None]
  - ACUTE MYOCARDIAL INFARCTION [None]
  - INTRACARDIAC THROMBUS [None]
  - GENERAL PHYSICAL HEALTH DETERIORATION [None]
